FAERS Safety Report 7117030-1 (Version None)
Quarter: 2010Q4

REPORT INFORMATION
  Report Type: 
  Country: None (occurrence: None)
  Receive Date: 20101122
  Receipt Date: 20101111
  Transmission Date: 20110411
  Serious: No
  Sender: FDA-Public Use
  Company Number: US-PFIZER INC-2010150354

PATIENT

DRUGS (1)
  1. CELEBREX [Suspect]
     Indication: PAIN IN EXTREMITY
     Dosage: 200 MG, DAILY

REACTIONS (1)
  - PAIN IN EXTREMITY [None]
